FAERS Safety Report 24532631 (Version 1)
Quarter: 2024Q4

REPORT INFORMATION
  Report Type: Spontaneous
  Country: CA (occurrence: CA)
  Receive Date: 20241022
  Receipt Date: 20241022
  Transmission Date: 20250115
  Serious: Yes (Life-Threatening, Hospitalization, Other)
  Sender: RANBAXY
  Company Number: CA-SUN PHARMACEUTICAL INDUSTRIES LTD-2024R1-474421

PATIENT
  Age: 8 Year
  Sex: Female

DRUGS (6)
  1. DEXTROSE [Suspect]
     Active Substance: DEXTROSE MONOHYDRATE
     Indication: Ketoacidosis
     Dosage: UNK
     Route: 065
  2. DEXTROSE [Suspect]
     Active Substance: DEXTROSE MONOHYDRATE
     Indication: Ketoacidosis
     Dosage: UNK
     Route: 065
  3. ONDANSETRON [Suspect]
     Active Substance: ONDANSETRON
     Indication: Ketoacidosis
     Dosage: 0.1 MILLIGRAM/KILOGRAM, Q8H
     Route: 065
  4. SODIUM CHLORIDE [Suspect]
     Active Substance: SODIUM CHLORIDE
     Indication: Ketoacidosis
     Dosage: UNK
     Route: 065
  5. BIOTIN [Suspect]
     Active Substance: BIOTIN
     Indication: Product used for unknown indication
     Dosage: 3 MILLIGRAM/KILOGRAM, QD
     Route: 048
  6. LEVOCARNITINE [Suspect]
     Active Substance: LEVOCARNITINE
     Indication: Product used for unknown indication
     Dosage: 100 MILLIGRAM/KILOGRAM, QD
     Route: 042

REACTIONS (2)
  - Condition aggravated [Unknown]
  - Therapy non-responder [Unknown]
